FAERS Safety Report 6473720-5 (Version None)
Quarter: 2009Q4

REPORT INFORMATION
  Report Type: 
  Country: None (occurrence: None)
  Receive Date: 20091204
  Receipt Date: 20091126
  Transmission Date: 20100525
  Serious: Yes (Hospitalization)
  Sender: FDA-Public Use
  Company Number: FR-JNJFOC-20091107865

PATIENT
  Age: 27 Year
  Sex: Female

DRUGS (10)
  1. TAVANIC [Suspect]
     Route: 065
     Dates: start: 20091001
  2. TAVANIC [Suspect]
     Indication: OSTEOMYELITIS
     Route: 065
     Dates: start: 20091001
  3. TOPALGIC [Suspect]
     Indication: DRUG USE FOR UNKNOWN INDICATION
     Route: 065
     Dates: start: 20091016, end: 20091022
  4. PARACETAMOL [Suspect]
     Route: 065
     Dates: start: 20091009
  5. PARACETAMOL [Suspect]
     Indication: DRUG USE FOR UNKNOWN INDICATION
     Route: 065
     Dates: start: 20091009
  6. ORBENIN CAP [Suspect]
     Indication: DRUG USE FOR UNKNOWN INDICATION
     Route: 065
     Dates: start: 20091009, end: 20091022
  7. FORLAX [Suspect]
     Indication: DRUG USE FOR UNKNOWN INDICATION
     Route: 065
     Dates: start: 20091009
  8. RIFAMPICIN [Suspect]
     Indication: DRUG USE FOR UNKNOWN INDICATION
     Route: 065
     Dates: start: 20091013, end: 20091022
  9. ACTISKENAN [Suspect]
     Indication: DRUG USE FOR UNKNOWN INDICATION
     Route: 065
     Dates: start: 20091013
  10. KARDEGIC [Suspect]
     Indication: DRUG USE FOR UNKNOWN INDICATION
     Route: 065
     Dates: start: 20091020, end: 20091022

REACTIONS (2)
  - PRURITUS [None]
  - RASH MACULO-PAPULAR [None]
